FAERS Safety Report 8803925 (Version 4)
Quarter: 2014Q2

REPORT INFORMATION
  Report Type: Report from Study
  Country: JP (occurrence: JP)
  Receive Date: 20120924
  Receipt Date: 20140513
  Transmission Date: 20141212
  Serious: Yes (Hospitalization)
  Sender: FDA-Public Use
  Company Number: JP-GILEAD-2012-0061475

PATIENT
  Age: 48 Year
  Sex: Female
  Weight: 45 kg

DRUGS (9)
  1. AMBRISENTAN [Suspect]
     Indication: PULMONARY ARTERIAL HYPERTENSION
     Dosage: 2.5 MG, QD
     Route: 048
     Dates: start: 20110124, end: 20110126
  2. AMBRISENTAN [Suspect]
     Dosage: 2.5 MG, BID
     Route: 048
     Dates: start: 20110127, end: 20111205
  3. AMBRISENTAN [Suspect]
     Dosage: 2.5 MG, TID
     Route: 048
     Dates: start: 20111205, end: 20120430
  4. AMBRISENTAN [Suspect]
     Dosage: 2.5 MG, BID
     Route: 048
     Dates: start: 20120501, end: 20120605
  5. REVATIO [Suspect]
     Indication: PULMONARY ARTERIAL HYPERTENSION
     Dosage: UNK
     Route: 048
     Dates: start: 200610
  6. FLOLAN [Concomitant]
     Indication: PULMONARY ARTERIAL HYPERTENSION
     Dosage: UNK
     Route: 042
     Dates: start: 20081111
  7. TRACLEER                           /01587701/ [Concomitant]
     Indication: PULMONARY ARTERIAL HYPERTENSION
     Dosage: UNK
     Route: 048
  8. TRACLEER                           /01587701/ [Concomitant]
     Route: 048
     Dates: start: 200606
  9. OXYGEN [Concomitant]

REACTIONS (1)
  - Liver disorder [Recovering/Resolving]
